FAERS Safety Report 15421898 (Version 2)
Quarter: 2018Q4

REPORT INFORMATION
  Report Type: Spontaneous
  Country: US (occurrence: US)
  Receive Date: 20180924
  Receipt Date: 20181018
  Transmission Date: 20190204
  Serious: No
  Sender: FDA-Public Use
  Company Number: US-ACTELION-A-NJ2018-178988

PATIENT
  Age: 41 Year
  Sex: Female
  Weight: 72.56 kg

DRUGS (5)
  1. UPTRAVI [Suspect]
     Active Substance: SELEXIPAG
     Indication: PULMONARY ARTERIAL HYPERTENSION
     Dosage: 1600 MCG, BID
     Route: 048
  2. ADCIRCA [Concomitant]
     Active Substance: TADALAFIL
  3. LETAIRIS [Concomitant]
     Active Substance: AMBRISENTAN
  4. UPTRAVI [Suspect]
     Active Substance: SELEXIPAG
     Dosage: 800 MCG, BID
     Route: 048
  5. UPTRAVI [Suspect]
     Active Substance: SELEXIPAG
     Dosage: 400 MCG, BID
     Route: 048

REACTIONS (9)
  - Back pain [Unknown]
  - Dizziness [Recovering/Resolving]
  - Incorrect dose administered [Unknown]
  - Headache [Recovering/Resolving]
  - Pain in jaw [Recovering/Resolving]
  - Arthralgia [Recovering/Resolving]
  - Flushing [Unknown]
  - Feeling abnormal [Recovering/Resolving]
  - Diarrhoea [Recovering/Resolving]
